APPROVED DRUG PRODUCT: WARFARIN SODIUM
Active Ingredient: WARFARIN SODIUM
Strength: 7.5MG
Dosage Form/Route: TABLET;ORAL
Application: A040301 | Product #009 | TE Code: AB
Applicant: TARO PHARMACEUTICAL INDUSTRIES LTD
Approved: Jul 15, 1999 | RLD: No | RS: No | Type: RX